FAERS Safety Report 5219284-5 (Version None)
Quarter: 2007Q1

REPORT INFORMATION
  Report Type: 
  Country: None (occurrence: None)
  Receive Date: 20070125
  Receipt Date: 20070116
  Transmission Date: 20070707
  Serious: Yes (Death)
  Sender: FDA-Public Use
  Company Number: US-JNJFOC-20061000044

PATIENT
  Sex: Male
  Weight: 113.4 kg

DRUGS (22)
  1. FENTANYL TRANSDERMAL SYSTEM [Suspect]
     Indication: ARTHRALGIA
     Route: 062
  2. FENTANYL TRANSDERMAL SYSTEM [Suspect]
     Indication: BACK PAIN
     Route: 062
  3. GLUCOTROL [Concomitant]
     Indication: DIABETES MELLITUS
     Route: 048
  4. VYTORIN [Concomitant]
     Indication: BLOOD CHOLESTEROL INCREASED
     Route: 048
  5. CALCITRIOL [Concomitant]
     Route: 048
  6. NEXIUM [Concomitant]
     Indication: GASTROOESOPHAGEAL REFLUX DISEASE
     Route: 048
  7. FLOMAX [Concomitant]
     Indication: URINARY TRACT DISORDER
     Route: 048
  8. COUMADIN [Concomitant]
     Indication: ATRIAL FIBRILLATION
     Route: 048
  9. NORVASC [Concomitant]
     Indication: HYPERTENSION
     Route: 048
  10. MONOPRIL [Concomitant]
     Indication: HYPERTENSION
     Route: 048
  11. LASIX [Concomitant]
     Indication: OEDEMA
     Route: 048
  12. OXYCODONE HCL [Concomitant]
     Indication: BREAKTHROUGH PAIN
     Route: 048
  13. LEVOXYL [Concomitant]
     Indication: HYPERPARATHYROIDISM
     Route: 048
  14. DOXAZOSIN MESYLATE [Concomitant]
     Route: 048
  15. DITROPAN XL [Concomitant]
     Indication: URINARY TRACT DISORDER
     Route: 048
  16. CALCIUM [Concomitant]
     Route: 048
  17. B50 [Concomitant]
     Route: 048
  18. GLUCOSAMINE [Concomitant]
     Route: 048
  19. CHROMIUM PICOLINATE [Concomitant]
     Route: 048
  20. MAGNESIUM [Concomitant]
     Route: 065
  21. B-12 [Concomitant]
     Indication: ANAEMIA
     Route: 065
  22. CHEMOTHERAPY [Concomitant]
     Indication: LUNG CANCER METASTATIC
     Route: 065

REACTIONS (3)
  - DEATH [None]
  - FATIGUE [None]
  - SPEECH DISORDER [None]
